FAERS Safety Report 21779496 (Version 3)
Quarter: 2023Q1

REPORT INFORMATION
  Report Type: Spontaneous
  Country: BR (occurrence: BR)
  Receive Date: 20221226
  Receipt Date: 20230329
  Transmission Date: 20230417
  Serious: Yes (Other)
  Sender: FDA-Public Use
  Company Number: BR-009507513-2209BRA004505

PATIENT
  Age: 74 Year
  Sex: Male
  Weight: 70 kg

DRUGS (6)
  1. KEYTRUDA [Suspect]
     Active Substance: PEMBROLIZUMAB
     Indication: Lung neoplasm malignant
     Dosage: UNK
     Route: 065
     Dates: start: 20220307
  2. KEYTRUDA [Suspect]
     Active Substance: PEMBROLIZUMAB
     Dosage: 200 MG ONCE A DAY (QD), CYCLE 5
     Route: 042
     Dates: start: 20220607, end: 20220607
  3. CARBOPLATIN [Suspect]
     Active Substance: CARBOPLATIN
     Dosage: UNK, EVERY 21 DAYS
     Route: 065
     Dates: start: 20220315
  4. CARBOPLATIN [Suspect]
     Active Substance: CARBOPLATIN
     Dosage: 422.687 MILLIGRAM, ONCE A DAY, (QD)
     Route: 042
     Dates: start: 20220607, end: 20220607
  5. TAXOL [Suspect]
     Active Substance: PACLITAXEL
     Dosage: UNK, EVERY 21 DAYS
     Route: 065
     Dates: start: 20220315
  6. TAXOL [Suspect]
     Active Substance: PACLITAXEL
     Dosage: 300 MG ONCE A DAY (QD)
     Route: 042
     Dates: start: 20220607, end: 20220607

REACTIONS (10)
  - Renal impairment [Recovered/Resolved]
  - Hypokalaemia [Recovered/Resolved]
  - Hyperalbuminaemia [Recovered/Resolved]
  - Hyperaemia [Recovered/Resolved]
  - Hypercalcaemia [Recovered/Resolved]
  - Hypocalcaemia [Recovered/Resolved]
  - Pruritus [Recovered/Resolved]
  - Rash [Recovered/Resolved]
  - Pyrexia [Recovered/Resolved]
  - Product use issue [Unknown]

NARRATIVE: CASE EVENT DATE: 20220301
